FAERS Safety Report 25869153 (Version 1)
Quarter: 2025Q3

REPORT INFORMATION
  Report Type: Spontaneous
  Country: US (occurrence: None)
  Receive Date: 20250930
  Receipt Date: 20250930
  Transmission Date: 20251021
  Serious: Yes (Disabling)
  Sender: FDA-CTU
  Company Number: None

PATIENT
  Age: 76 Year
  Sex: Female
  Weight: 55.35 kg

DRUGS (10)
  1. RECLAST [Suspect]
     Active Substance: ZOLEDRONIC ACID
     Indication: Osteoporosis
     Dates: start: 20250819
  2. LEVOTHYROXINE [Concomitant]
     Active Substance: LEVOTHYROXINE
  3. SIMVASTATIN [Concomitant]
     Active Substance: SIMVASTATIN
  4. Citrine [Concomitant]
  5. FIBER THERAPY (CALCIUM POLYCARBOPHIL) [Concomitant]
     Active Substance: CALCIUM POLYCARBOPHIL
  6. VITAMINS [Concomitant]
     Active Substance: VITAMINS
  7. calcium w/D [Concomitant]
  8. Multi vit gummy [Concomitant]
  9. CALCIUM [Concomitant]
     Active Substance: CALCIUM
  10. VITAMIN D NOS [Concomitant]
     Active Substance: CHOLECALCIFEROL\ERGOCALCIFEROL

REACTIONS (9)
  - Sciatica [None]
  - Musculoskeletal stiffness [None]
  - Muscular weakness [None]
  - Brain fog [None]
  - Drug intolerance [None]
  - Muscular weakness [None]
  - Hypoaesthesia [None]
  - Peripheral coldness [None]
  - Balance disorder [None]

NARRATIVE: CASE EVENT DATE: 20250905
